FAERS Safety Report 20998210 (Version 11)
Quarter: 2022Q4

REPORT INFORMATION
  Report Type: Report from Study
  Country: DE (occurrence: None)
  Receive Date: 20220623
  Receipt Date: 20221006
  Transmission Date: 20230113
  Serious: Yes (Death, Hospitalization, Disabling)
  Sender: FDA-Public Use
  Company Number: DE-ROCHE-3119380

PATIENT
  Age: 63 Year
  Sex: Male

DRUGS (5)
  1. ATEZOLIZUMAB [Suspect]
     Active Substance: ATEZOLIZUMAB
     Indication: Bile duct cancer
     Dosage: ON 13/JUN/2022, RECEIVED MOST RECENT DOSE OF ATEZOLIZUMAB (840 MG) BEFORE EVENT.?HE RECEIVED THE DOS
     Route: 042
     Dates: start: 20220523
  2. BEVACIZUMAB [Suspect]
     Active Substance: BEVACIZUMAB
     Indication: Bile duct cancer
     Dosage: ON 13/JUN/2022, RECEIVED MOST RECENT DOSE OF BEVACIZUMAB (787 MG) BEFORE EVENT.
     Route: 042
     Dates: start: 20220523
  3. LEUCOVORIN [Concomitant]
     Active Substance: LEUCOVORIN
     Indication: Bile duct cancer
     Dosage: D,L RACEMIC FORM, 400 MG/M2
     Route: 042
     Dates: start: 20220523, end: 20220613
  4. FLUOROURACIL [Concomitant]
     Active Substance: FLUOROURACIL
     Indication: Bile duct cancer
     Route: 042
     Dates: start: 20220523, end: 20220613
  5. OXALIPLATIN [Concomitant]
     Active Substance: OXALIPLATIN
     Indication: Bile duct cancer
     Route: 042
     Dates: start: 20220523, end: 20220613

REACTIONS (3)
  - Myasthenia gravis [Not Recovered/Not Resolved]
  - Hepatic encephalopathy [Recovered/Resolved]
  - Hepatic failure [Fatal]

NARRATIVE: CASE EVENT DATE: 20220613
